FAERS Safety Report 15039722 (Version 1)
Quarter: 2018Q2

REPORT INFORMATION
  Report Type: Spontaneous
  Country: DK (occurrence: DK)
  Receive Date: 20180620
  Receipt Date: 20180620
  Transmission Date: 20180711
  Serious: Yes (Hospitalization)
  Sender: FDA-Public Use
  Company Number: DK-009507513-1806DNK006344

PATIENT
  Age: 63 Year
  Sex: Female

DRUGS (12)
  1. PAMOL [Concomitant]
     Active Substance: ACETAMINOPHEN
     Indication: PAIN
     Dosage: 500 MG. DOSE: 2 TABLETS AS NECESSARY A MAXIMUM OF 3 TIMES DAILY; AS NECESSARY
     Route: 048
     Dates: start: 20160906
  2. OFTAGEL [Concomitant]
     Active Substance: CARBOMER
     Indication: EYE LUBRICATION THERAPY
     Dosage: STRENGTH: 2.5 MG
     Route: 057
  3. LOCOID [Concomitant]
     Active Substance: HYDROCORTISONE BUTYRATE
     Indication: SKIN DISORDER
     Dosage: STRENGTH: 0.1 %
     Route: 003
     Dates: start: 20180122
  4. UNIKALK FORTE [Concomitant]
     Indication: MINERAL SUPPLEMENTATION
     Dosage: STRENGTH: 400 MG + 19 MICROGRAM, DOSE REPORTED 1
     Route: 048
     Dates: start: 20120302
  5. IMOCLONE [Concomitant]
     Active Substance: ZOPICLONE
     Indication: INSOMNIA
     Dosage: STRENGTH: 7.5 MG
     Route: 048
     Dates: start: 20171128
  6. PANTOPRAZOL ACTAVIS [Concomitant]
     Active Substance: PANTOPRAZOLE SODIUM
     Indication: GASTRIC ULCER
     Dosage: STRENGTH: 40 MG
     Route: 048
     Dates: start: 20180303
  7. MINERAL OIL. [Concomitant]
     Active Substance: MINERAL OIL
     Indication: EYE LUBRICATION THERAPY
     Dosage: STRENGTH: 200 MG/G
     Route: 057
     Dates: start: 20180110
  8. ZOLEDRONIC ACID [Concomitant]
     Active Substance: ZOLEDRONIC ACID
     Indication: MUSCULOSKELETAL DISORDER
     Dosage: STRENGTH: 4 MG
     Route: 042
     Dates: start: 20170904, end: 20171107
  9. KEYTRUDA [Suspect]
     Active Substance: PEMBROLIZUMAB
     Indication: LUNG NEOPLASM MALIGNANT
     Dosage: STRENGTH: 50 MG
     Route: 042
     Dates: start: 20170904, end: 20171107
  10. ATORVASTATIN TEVA [Suspect]
     Active Substance: ATORVASTATIN
     Indication: HYPERCHOLESTEROLAEMIA
     Dosage: STRENGTH: 40 MG
     Route: 048
     Dates: start: 20170818, end: 20180424
  11. PREDNISOLONE. [Concomitant]
     Active Substance: PREDNISOLONE
     Indication: HORMONE THERAPY
     Dosage: STRENGTH: 25 MG
     Route: 048
     Dates: start: 20170926
  12. ASPIRIN. [Concomitant]
     Active Substance: ASPIRIN
     Indication: THROMBOSIS PROPHYLAXIS
     Dosage: STRENGTH: 75 MG
     Route: 048
     Dates: start: 20170808

REACTIONS (3)
  - Wrong drug administered [Recovered/Resolved]
  - Hepatotoxicity [Not Recovered/Not Resolved]
  - Hepatocellular injury [Not Recovered/Not Resolved]

NARRATIVE: CASE EVENT DATE: 2017
